FAERS Safety Report 7769141-5 (Version None)
Quarter: 2011Q3

REPORT INFORMATION
  Report Type: 
  Country: None (occurrence: None)
  Receive Date: 20110922
  Receipt Date: 20110509
  Transmission Date: 20111222
  Serious: No
  Sender: FDA-Public Use
  Company Number: US-ASTRAZENECA-2010SE06551

PATIENT
  Sex: Female
  Weight: 59 kg

DRUGS (4)
  1. SEROQUEL [Suspect]
     Dosage: TOTAL DAILY DOSAGE - 400 MG, FREQUENCY- TWO TIMES A DAY
     Route: 048
     Dates: start: 20110401
  2. SEROQUEL [Suspect]
     Indication: BIPOLAR DISORDER
     Route: 048
  3. SEROQUEL [Suspect]
     Dosage: TOTAL DAILY DOSAGE - 200 MG, FREQUENCY- TWO TIMES A DAY
     Route: 048
     Dates: start: 20070101, end: 20110401
  4. SEROQUEL [Suspect]
     Route: 048

REACTIONS (5)
  - DRUG DOSE OMISSION [None]
  - PANIC ATTACK [None]
  - SELF INJURIOUS BEHAVIOUR [None]
  - DRUG EFFECT DELAYED [None]
  - BLOOD PRESSURE INCREASED [None]
